FAERS Safety Report 21113778 (Version 2)
Quarter: 2022Q3

REPORT INFORMATION
  Report Type: Spontaneous
  Country: US (occurrence: US)
  Receive Date: 20220721
  Receipt Date: 20220907
  Transmission Date: 20221026
  Serious: Yes (Death, Hospitalization)
  Sender: FDA-Public Use
  Company Number: ENDG22-04331

PATIENT
  Age: 3 Year
  Sex: Male
  Weight: 17.3 kg

DRUGS (3)
  1. BOSENTAN [Suspect]
     Active Substance: BOSENTAN
     Indication: Pulmonary hypertension
     Dosage: 32 MG, BID
     Dates: start: 202105, end: 20220204
  2. SILDENAFIL [Concomitant]
     Active Substance: SILDENAFIL
     Indication: Pulmonary arterial hypertension
     Dosage: 20 MG, TID
     Dates: start: 201709, end: 202202
  3. REMODULIN [Concomitant]
     Active Substance: TREPROSTINIL
     Indication: Pulmonary arterial hypertension
     Dosage: 58 (NG/KG/MIN) UNKNOWN, UNKNOWN
     Route: 058
     Dates: start: 201709, end: 202202

REACTIONS (4)
  - Acute respiratory failure [Fatal]
  - Right ventricular failure [Fatal]
  - Pulmonary hypertension [Fatal]
  - Off label use [Recovered/Resolved]

NARRATIVE: CASE EVENT DATE: 20210501
